FAERS Safety Report 8320099-X (Version None)
Quarter: 2012Q2

REPORT INFORMATION
  Report Type: 
  Country: None (occurrence: None)
  Receive Date: 20120429
  Receipt Date: 20120418
  Transmission Date: 20120825
  Serious: Yes (Hospitalization)
  Sender: FDA-Public Use
  Company Number: DE-ELI_LILLY_AND_COMPANY-DE201202002172

PATIENT
  Age: 72 Year
  Sex: Female
  Weight: 59 kg

DRUGS (1)
  1. FORTEO [Suspect]
     Indication: OSTEOPOROSIS
     Dosage: UNK, QD
     Route: 058
     Dates: start: 20120105, end: 20120306

REACTIONS (6)
  - INCREASED APPETITE [None]
  - WEIGHT INCREASED [None]
  - CARDIOVASCULAR INSUFFICIENCY [None]
  - FLUID RETENTION [None]
  - MALAISE [None]
  - PLEURAL EFFUSION [None]
